FAERS Safety Report 15727491 (Version 1)
Quarter: 2018Q4

REPORT INFORMATION
  Report Type: Spontaneous
  Country: US (occurrence: US)
  Receive Date: 20181217
  Receipt Date: 20181217
  Transmission Date: 20190205
  Serious: Yes (Hospitalization, Other)
  Sender: FDA-Public Use
  Company Number: US-ROCHE-2231506

PATIENT
  Sex: Female

DRUGS (1)
  1. KLONOPIN [Suspect]
     Active Substance: CLONAZEPAM
     Indication: VOCAL CORD DYSFUNCTION
     Route: 048

REACTIONS (6)
  - Weight decreased [Unknown]
  - Transient ischaemic attack [Unknown]
  - Chest pain [Unknown]
  - Hypoaesthesia [Unknown]
  - Off label use [Unknown]
  - Intentional product use issue [Unknown]
